FAERS Safety Report 16707514 (Version 1)
Quarter: 2019Q3

REPORT INFORMATION
  Report Type: Spontaneous
  Country: GB (occurrence: GB)
  Receive Date: 20190815
  Receipt Date: 20190815
  Transmission Date: 20191004
  Serious: Yes (Death, Other)
  Sender: FDA-Public Use
  Company Number: GB-MYLANLABS-2019M1076682

PATIENT
  Age: 24 Year
  Sex: Male
  Weight: 68 kg

DRUGS (9)
  1. HYOSCINE HYDROBROMIDE [Concomitant]
     Active Substance: SCOPOLAMINE HYDROBROMIDE
     Indication: DROOLING
     Dates: end: 20160825
  2. CLOZAPINE. [Suspect]
     Active Substance: CLOZAPINE
     Dosage: 225 MILLIGRAM, QD
     Dates: start: 20150924, end: 201512
  3. CLOZAPINE. [Suspect]
     Active Substance: CLOZAPINE
     Dosage: 300 MILLIGRAM, QD
     Dates: start: 20151224, end: 20160825
  4. PROPRANOLOL [Concomitant]
     Active Substance: PROPRANOLOL HYDROCHLORIDE
     Dates: end: 20160825
  5. KWELLS [Concomitant]
     Active Substance: SCOPOLAMINE HYDROBROMIDE
     Dates: end: 20160825
  6. CLOZAPINE. [Suspect]
     Active Substance: CLOZAPINE
     Indication: SCHIZOPHRENIA
     Dosage: 250 MILLIGRAM
     Dates: end: 20150924
  7. CASSIA ACUTIFOLIA [Concomitant]
     Indication: CONSTIPATION
     Dosage: NIGHT
     Dates: end: 20160825
  8. NICOTINE. [Concomitant]
     Active Substance: NICOTINE
     Indication: SMOKING CESSATION THERAPY
     Dates: end: 20160825
  9. LACTULOSE. [Concomitant]
     Active Substance: LACTULOSE
     Indication: CONSTIPATION
     Dosage: MORNING
     Dates: end: 20160825

REACTIONS (10)
  - Confusional state [Unknown]
  - Haemorrhagic pneumonia [Not Recovered/Not Resolved]
  - Aspiration [Not Recovered/Not Resolved]
  - Unresponsive to stimuli [Recovered/Resolved]
  - Toxicity to various agents [Not Recovered/Not Resolved]
  - Generalised tonic-clonic seizure [Unknown]
  - Vomiting [Unknown]
  - Pallor [Unknown]
  - Cardiac arrest [Fatal]
  - Dyspnoea [Unknown]

NARRATIVE: CASE EVENT DATE: 20160825
